FAERS Safety Report 6564751 (Version 2)
Quarter: 2013Q2

REPORT INFORMATION
  Report Type: Spontaneous
  Country: IN (occurrence: IN)
  Receive Date: 20080228
  Receipt Date: 20130627
  Transmission Date: 20140414
  Serious: Yes (Death, Other)
  Sender: FDA-Public Use
  Company Number: IN-RANBAXY-2008RR-13123

PATIENT
  Sex: Male

DRUGS (2)
  1. SERTRALIN [Suspect]
     Indication: DEPRESSION
     Dosage: UNK
     Route: 065
  2. SERTRALIN HEXAL [Concomitant]
     Indication: DEPRESSION
     Dosage: UNK
     Route: 065

REACTIONS (1)
  - Drug ineffective [Recovering/Resolving]
